FAERS Safety Report 20673766 (Version 1)
Quarter: 2022Q2

REPORT INFORMATION
  Report Type: Spontaneous
  Country: CN (occurrence: CN)
  Receive Date: 20220405
  Receipt Date: 20220405
  Transmission Date: 20220721
  Serious: Yes (Other)
  Sender: FDA-Public Use
  Company Number: CN-BAXTER-2022BAX007199

PATIENT
  Age: 9 Year
  Sex: Male
  Weight: 28.5 kg

DRUGS (2)
  1. IFOSFAMIDE [Suspect]
     Active Substance: IFOSFAMIDE
     Indication: Acute lymphocytic leukaemia
     Dosage: IFOSFAMIDE FOR INJECTION 0.88G + 5% GLUCOSE INJECTION 100ML
     Route: 041
     Dates: start: 20220308, end: 20220310
  2. DEXTROSE [Suspect]
     Active Substance: DEXTROSE
     Indication: Medication dilution
     Dosage: IFOSFAMIDE FOR INJECTION 0.88G + 5% GLUCOSE INJECTION 100ML
     Route: 041
     Dates: start: 20220308, end: 20220310

REACTIONS (2)
  - Hepatic function abnormal [Recovering/Resolving]
  - Drug-induced liver injury [Recovering/Resolving]

NARRATIVE: CASE EVENT DATE: 20220311
